FAERS Safety Report 18779979 (Version 2)
Quarter: 2023Q2

REPORT INFORMATION
  Report Type: Report from Study
  Country: US (occurrence: US)
  Receive Date: 20210125
  Receipt Date: 20230615
  Transmission Date: 20230722
  Serious: Yes (Hospitalization)
  Sender: FDA-Public Use
  Company Number: US-BAUSCH-BL-2020-022385

PATIENT
  Age: 65 Year
  Sex: Male

DRUGS (2)
  1. XIFAXAN [Suspect]
     Active Substance: RIFAXIMIN
     Indication: Product used for unknown indication
     Route: 048
  2. XIFAXAN [Suspect]
     Active Substance: RIFAXIMIN
     Route: 048
     Dates: end: 202306

REACTIONS (4)
  - Hospitalisation [Unknown]
  - Product use issue [Unknown]
  - Insurance issue [Unknown]
  - Ammonia increased [Unknown]

NARRATIVE: CASE EVENT DATE: 20230601
